FAERS Safety Report 11346521 (Version 1)
Quarter: 2015Q3

REPORT INFORMATION
  Report Type: Spontaneous
  Country: US (occurrence: US)
  Receive Date: 20150803
  Receipt Date: 20150803
  Transmission Date: 20151125
  Serious: No
  Sender: FDA-Public Use
  Company Number: US-ELI_LILLY_AND_COMPANY-US201010004281

PATIENT
  Age: 55 Year
  Sex: Male

DRUGS (6)
  1. ZYPREXA [Suspect]
     Active Substance: OLANZAPINE
     Indication: BIPOLAR DISORDER
     Dosage: 5 MG, EACH EVENING
  2. ZYPREXA [Suspect]
     Active Substance: OLANZAPINE
     Dosage: 5 MG, DAILY (1/D)
     Dates: start: 201010
  3. KLONOPIN [Concomitant]
     Active Substance: CLONAZEPAM
     Dosage: 0.5 MG, UNK
  4. PROTONIX [Concomitant]
     Active Substance: PANTOPRAZOLE SODIUM
  5. LIPITOR [Concomitant]
     Active Substance: ATORVASTATIN CALCIUM
  6. MARPLAN [Concomitant]
     Active Substance: ISOCARBOXAZID

REACTIONS (6)
  - Dry mouth [Unknown]
  - Tremor [Unknown]
  - Hyperhidrosis [Unknown]
  - Feeling jittery [Unknown]
  - Heart rate increased [Unknown]
  - Insomnia [Unknown]

NARRATIVE: CASE EVENT DATE: 20101017
